FAERS Safety Report 4355671-5 (Version None)
Quarter: 2004Q2

REPORT INFORMATION
  Report Type: 
  Country: None (occurrence: None)
  Receive Date: 20040507
  Receipt Date: 20040422
  Transmission Date: 20050107
  Serious: No
  Sender: FDA-Public Use
  Company Number: 04P-163-0258944-00

PATIENT
  Age: 49 Year
  Sex: Male
  Weight: 93 kg

DRUGS (1)
  1. GENGRAF [Suspect]
     Indication: HEART TRANSPLANT

REACTIONS (1)
  - RENAL FAILURE CHRONIC [None]
